FAERS Safety Report 5739324-4 (Version None)
Quarter: 2008Q2

REPORT INFORMATION
  Report Type: 
  Country: None (occurrence: None)
  Receive Date: 20080515
  Receipt Date: 20080508
  Transmission Date: 20081010
  Serious: Yes (Other)
  Sender: FDA-Public Use
  Company Number: US-ALLERGAN-0805602US

PATIENT
  Age: 77 Year
  Sex: Female

DRUGS (4)
  1. LUMIGAN [Suspect]
     Indication: GLAUCOMA
     Dosage: 1 GTT, QPM
     Route: 047
     Dates: start: 20030101
  2. VITAMINS [Concomitant]
     Indication: VITAMIN SUPPLEMENTATION
  3. ALBUTEROL [Concomitant]
     Dosage: UNK, PRN
  4. OMNIPRED [Concomitant]
     Indication: POSTOPERATIVE CARE
     Dosage: UNK, QID

REACTIONS (2)
  - INTRAOCULAR PRESSURE INCREASED [None]
  - SWELLING FACE [None]
